FAERS Safety Report 7406033-5 (Version None)
Quarter: 2011Q2

REPORT INFORMATION
  Report Type: 
  Country: None (occurrence: None)
  Receive Date: 20110411
  Receipt Date: 20110408
  Transmission Date: 20111010
  Serious: Yes (Hospitalization)
  Sender: FDA-Public Use
  Company Number: A0917900A

PATIENT
  Sex: Female

DRUGS (1)
  1. ADVAIR HFA [Suspect]
     Indication: ASTHMA
     Route: 055

REACTIONS (5)
  - PRODUCT QUALITY ISSUE [None]
  - ASTHMA [None]
  - ADVERSE EVENT [None]
  - UNDERDOSE [None]
  - DEVICE MALFUNCTION [None]
